FAERS Safety Report 4354104-2 (Version None)
Quarter: 2004Q2

REPORT INFORMATION
  Report Type: 
  Country: None (occurrence: None)
  Receive Date: 20040430
  Receipt Date: 20040415
  Transmission Date: 20050107
  Serious: Yes (Hospitalization)
  Sender: FDA-Public Use
  Company Number: 2004-UK-00267UK

PATIENT
  Age: 28 Year
  Sex: Male

DRUGS (2)
  1. VIRAMUNE [Suspect]
     Indication: RETROVIRAL INFECTION
     Dosage: 200MG TWICE DAILY, (MG, TWICE DAILY) PO
     Route: 048
     Dates: start: 20030923, end: 20031009
  2. COMBIVR (ZIDOVUDINE W/LAMIVUDINE) [Concomitant]

REACTIONS (6)
  - COUGH [None]
  - HEADACHE [None]
  - JOINT STIFFNESS [None]
  - NASAL CONGESTION [None]
  - RHINORRHOEA [None]
  - STEVENS-JOHNSON SYNDROME [None]
